FAERS Safety Report 4300759-8 (Version None)
Quarter: 2004Q1

REPORT INFORMATION
  Report Type: 
  Country: None (occurrence: None)
  Receive Date: 20040217
  Receipt Date: 20040204
  Transmission Date: 20041129
  Serious: Yes (Hospitalization)
  Sender: FDA-Public Use
  Company Number: 2004SE00577

PATIENT
  Age: 47 Year
  Sex: Female

DRUGS (12)
  1. BLOPRESS [Suspect]
     Indication: HYPERTENSION
     Dosage: 4 MG BID PO
     Route: 048
     Dates: end: 20040112
  2. BLOPRESS [Suspect]
     Indication: HYPERTENSION
     Dosage: 4 MG DAILY PO
     Route: 048
     Dates: start: 20040113, end: 20040128
  3. PAROXETINE HYDORCHLORIDE [Concomitant]
  4. LORAZEPAM [Concomitant]
  5. CLONAZEPAM [Concomitant]
  6. MONTELUKAST SODIUM [Concomitant]
  7. OLOPATADINE HYDROCHLORIDE [Concomitant]
  8. TIARAMIDE HYDROCHLORIDE [Concomitant]
  9. CARBOCISTEINE [Concomitant]
  10. SALMETEROL XINAFOATE [Concomitant]
  11. BUDESONIDE [Concomitant]
  12. BROMHEXINE HYDROCHLORIDE [Concomitant]

REACTIONS (7)
  - BLOOD PRESSURE IMMEASURABLE [None]
  - CEREBRAL INFARCTION [None]
  - DYSARTHRIA [None]
  - FEELING ABNORMAL [None]
  - HYPOTENSION [None]
  - LOSS OF CONSCIOUSNESS [None]
  - PANIC DISORDER [None]
